FAERS Safety Report 8382711-9 (Version None)
Quarter: 2012Q2

REPORT INFORMATION
  Report Type: 
  Country: None (occurrence: None)
  Receive Date: 20120524
  Receipt Date: 20120514
  Transmission Date: 20120825
  Serious: No
  Sender: FDA-Public Use
  Company Number: US-ROXANE LABORATORIES, INC.-2012-RO-01278RO

PATIENT
  Age: 75 Year

DRUGS (1)
  1. MORPHINE [Suspect]

REACTIONS (1)
  - DRUG INEFFECTIVE [None]
